FAERS Safety Report 16222979 (Version 2)
Quarter: 2019Q3

REPORT INFORMATION
  Report Type: Spontaneous
  Country: US (occurrence: US)
  Receive Date: 20190422
  Receipt Date: 20190703
  Transmission Date: 20191004
  Serious: Yes (Other)
  Sender: FDA-Public Use
  Company Number: US-SA-2019SA104298

PATIENT
  Age: 60 Year
  Sex: Female
  Weight: 75.75 kg

DRUGS (19)
  1. INTEGRA [CHONDROITIN SULFATE;COLLAGEN] [Concomitant]
  2. ZOFRAN [Concomitant]
     Active Substance: ONDANSETRON HYDROCHLORIDE
  3. TAXOTERE [Suspect]
     Active Substance: DOCETAXEL
     Dosage: 250 MG, Q3W
     Route: 042
     Dates: start: 20100427, end: 20100427
  4. AZOR [ALPRAZOLAM] [Concomitant]
     Active Substance: ALPRAZOLAM
     Dosage: UNK
  5. IBUPROFEN. [Concomitant]
     Active Substance: IBUPROFEN
     Dosage: UNK
  6. JANUMET [Concomitant]
     Active Substance: METFORMIN HYDROCHLORIDE\SITAGLIPTIN PHOSPHATE
     Dosage: UNK
  7. ZANTAC [Concomitant]
     Active Substance: RANITIDINE HYDROCHLORIDE
  8. LIPITOR [Concomitant]
     Active Substance: ATORVASTATIN CALCIUM
     Dosage: UNK
  9. AMLODIPINE [Concomitant]
     Active Substance: AMLODIPINE BESYLATE
     Dosage: UNK
  10. BENADRYL [Concomitant]
     Active Substance: DIPHENHYDRAMINE HYDROCHLORIDE
  11. LASIX [Concomitant]
     Active Substance: FUROSEMIDE
  12. CITALOPRAM [Concomitant]
     Active Substance: CITALOPRAM HYDROBROMIDE
  13. OLMESARTAN [Concomitant]
     Active Substance: OLMESARTAN
     Dosage: UNK
  14. ALOXI [Concomitant]
     Active Substance: PALONOSETRON HYDROCHLORIDE
  15. GABAPENTIN. [Concomitant]
     Active Substance: GABAPENTIN
     Dosage: UNK
  16. CYTOXAN [Concomitant]
     Active Substance: CYCLOPHOSPHAMIDE
  17. TAXOTERE [Suspect]
     Active Substance: DOCETAXEL
     Indication: BREAST CANCER FEMALE
     Dosage: 250 MG, Q3W
     Route: 042
     Dates: start: 20100318, end: 20100318
  18. MOTRIN [NAPROXEN] [Concomitant]
     Active Substance: NAPROXEN
  19. NEOSAR [Concomitant]
     Active Substance: CYCLOPHOSPHAMIDE

REACTIONS (1)
  - Alopecia [Recovering/Resolving]

NARRATIVE: CASE EVENT DATE: 201004
